FAERS Safety Report 9925586 (Version 1)
Quarter: 2014Q1

REPORT INFORMATION
  Report Type: Spontaneous
  Country: RU (occurrence: RU)
  Receive Date: 20140226
  Receipt Date: 20140226
  Transmission Date: 20141002
  Serious: Yes (Other)
  Sender: FDA-Public Use
  Company Number: RU-JNJFOC-20140214763

PATIENT
  Age: 31 Year
  Sex: Male

DRUGS (1)
  1. REMICADE [Suspect]
     Indication: PRODUCT USED FOR UNKNOWN INDICATION
     Route: 042
     Dates: start: 20120120, end: 20131206

REACTIONS (5)
  - Dermatitis exfoliative [Unknown]
  - Psoriasis [Unknown]
  - Drug ineffective [Unknown]
  - Pyrexia [Unknown]
  - Pain [Unknown]
